FAERS Safety Report 8407937-7 (Version None)
Quarter: 2012Q2

REPORT INFORMATION
  Report Type: 
  Country: None (occurrence: None)
  Receive Date: 20120604
  Receipt Date: 20120527
  Transmission Date: 20120825
  Serious: Yes (Other)
  Sender: FDA-Public Use
  Company Number: US-BAYER-2012-053669

PATIENT
  Sex: Female

DRUGS (2)
  1. CIPROFLOXACIN HCL [Suspect]
     Indication: URINARY TRACT INFECTION
  2. LYRICA [Concomitant]
     Indication: NEURALGIA

REACTIONS (17)
  - URINARY TRACT INFECTION [None]
  - MICTURITION URGENCY [None]
  - POLLAKIURIA [None]
  - HEADACHE [None]
  - NAUSEA [None]
  - MILIA [None]
  - YELLOW SKIN [None]
  - RASH [None]
  - HALLUCINATION, AUDITORY [None]
  - FUNGAL INFECTION [None]
  - DIARRHOEA [None]
  - NEURALGIA [None]
  - HYPOAESTHESIA [None]
  - PARAESTHESIA [None]
  - DYSURIA [None]
  - CHROMATURIA [None]
  - ANXIETY [None]
